FAERS Safety Report 17604610 (Version 1)
Quarter: 2020Q1

REPORT INFORMATION
  Report Type: Spontaneous
  Country: US (occurrence: US)
  Receive Date: 20200331
  Receipt Date: 20200331
  Transmission Date: 20200409
  Serious: No
  Sender: FDA-Public Use
  Company Number: US-PFIZER INC-2020130958

PATIENT
  Age: 65 Year
  Sex: Female
  Weight: 99.79 kg

DRUGS (1)
  1. GABAPENTIN. [Suspect]
     Active Substance: GABAPENTIN
     Dosage: 300 MG 4X/DAY (EVERY 6 HOURS)

REACTIONS (2)
  - Drug ineffective [Unknown]
  - Off label use [Unknown]
